FAERS Safety Report 6195272-X (Version None)
Quarter: 2009Q2

REPORT INFORMATION
  Report Type: 
  Country: None (occurrence: None)
  Receive Date: 20090519
  Receipt Date: 20090512
  Transmission Date: 20091009
  Serious: Yes (Hospitalization)
  Sender: FDA-Public Use
  Company Number: US-AVENTIS-200914192US

PATIENT
  Sex: Male

DRUGS (15)
  1. LANTUS [Suspect]
     Indication: TYPE 2 DIABETES MELLITUS
     Route: 058
     Dates: start: 20090303
  2. CARDURA                            /00639301/ [Concomitant]
  3. LISINOPRIL [Concomitant]
  4. ALLEGRA [Concomitant]
     Dosage: DOSE: 1 TABLET
  5. FLONASE [Concomitant]
     Dosage: DOSE: 1 SPRAY IN EACH NOSTRIL AT BEDTIME
  6. PRILOSEC [Concomitant]
  7. PREDNISONE [Concomitant]
  8. CRESTOR [Concomitant]
  9. PLAVIX [Concomitant]
  10. COZAAR [Concomitant]
  11. POTASSIUM CHLORIDE [Concomitant]
     Dosage: DOSE: 1 TABLET
  12. MULTI-VITAMINS [Concomitant]
     Dosage: DOSE: 1 TABLET
  13. ASPIRIN [Concomitant]
  14. LASIX [Concomitant]
     Dosage: DOSE: UNK
  15. METOLAZONE [Concomitant]
     Dosage: DOSE: UNK

REACTIONS (2)
  - BLOOD GLUCOSE INCREASED [None]
  - CARDIAC FAILURE CONGESTIVE [None]
